FAERS Safety Report 9056837 (Version 1)
Quarter: 2013Q1

REPORT INFORMATION
  Report Type: Spontaneous
  Country: US (occurrence: US)
  Receive Date: 20130201
  Receipt Date: 20130201
  Transmission Date: 20140127
  Serious: Yes (Death)
  Sender: FDA-Public Use
  Company Number: US-GLAXOSMITHKLINE-A1009479A

PATIENT
  Age: 88 Year
  Sex: Female

DRUGS (2)
  1. ADVAIR [Suspect]
     Indication: CHRONIC OBSTRUCTIVE PULMONARY DISEASE
     Dosage: 1PUFF TWICE PER DAY
     Route: 055
     Dates: start: 200104, end: 20120219
  2. NO CONCURRENT MEDICATION [Concomitant]

REACTIONS (2)
  - Dementia Alzheimer^s type [Fatal]
  - Pruritus [Unknown]
